FAERS Safety Report 5064975-2 (Version None)
Quarter: 2006Q3

REPORT INFORMATION
  Report Type: 
  Country: None (occurrence: None)
  Receive Date: 20060728
  Receipt Date: 20051020
  Transmission Date: 20061208
  Serious: Yes (Other)
  Sender: FDA-Public Use
  Company Number: FR-BOEHRINGER INGELHEIM PHARMACEUTICALS, INC.-2005-FF-00750FF

PATIENT
  Sex: Female
  Weight: 50 kg

DRUGS (3)
  1. VIRAMUNE [Suspect]
     Indication: HIV INFECTION
     Route: 048
     Dates: start: 20050916, end: 20050927
  2. VIREAD [Concomitant]
     Indication: HIV INFECTION
     Route: 048
     Dates: start: 20031202
  3. EMTRIVA [Concomitant]
     Indication: HIV INFECTION
     Route: 048
     Dates: start: 20040317

REACTIONS (4)
  - ARTHRALGIA [None]
  - JOINT ANKYLOSIS [None]
  - MYALGIA [None]
  - RASH [None]
